FAERS Safety Report 7768942-7 (Version None)
Quarter: 2011Q3

REPORT INFORMATION
  Report Type: 
  Country: None (occurrence: None)
  Receive Date: 20110922
  Receipt Date: 20101221
  Transmission Date: 20111222
  Serious: No
  Sender: FDA-Public Use
  Company Number: US-ASTRAZENECA-2010SE60161

PATIENT
  Age: 43 Year
  Sex: Male
  Weight: 127 kg

DRUGS (5)
  1. CELEXA [Concomitant]
     Indication: BIPOLAR DISORDER
  2. METFORMIN [Concomitant]
     Indication: DIABETES MELLITUS
  3. TRAZODONE HCL [Concomitant]
     Indication: BIPOLAR DISORDER
  4. SEROQUEL [Suspect]
     Indication: BIPOLAR DISORDER
     Route: 048
     Dates: start: 20091001, end: 20101219
  5. LISINOPRIL [Concomitant]
     Indication: HYPERTENSION

REACTIONS (3)
  - INSOMNIA [None]
  - WRONG TECHNIQUE IN DRUG USAGE PROCESS [None]
  - DRUG DOSE OMISSION [None]
